FAERS Safety Report 6811949-4 (Version None)
Quarter: 2010Q3

REPORT INFORMATION
  Report Type: 
  Country: None (occurrence: None)
  Receive Date: 20100701
  Receipt Date: 20100330
  Transmission Date: 20110219
  Serious: Yes (Hospitalization, Other)
  Sender: FDA-Public Use
  Company Number: US-ASTRAZENECA-2006UW05183

PATIENT
  Age: 16215 Day
  Sex: Female
  Weight: 73.9 kg

DRUGS (31)
  1. SEROQUEL [Suspect]
     Indication: DEPRESSION
     Route: 048
     Dates: start: 20000801, end: 20010401
  2. SEROQUEL [Suspect]
     Indication: PSYCHOTIC DISORDER
     Route: 048
     Dates: start: 20000801, end: 20010401
  3. SEROQUEL [Suspect]
     Dosage: 100 MG TAKE ONE TABLET PO QAM AND 2 TABLETS PO QHS
     Route: 048
     Dates: start: 20001206
  4. SEROQUEL [Suspect]
     Dosage: 100 MG TAKE ONE TABLET PO QAM AND 2 TABLETS PO QHS
     Route: 048
     Dates: start: 20001206
  5. RISPERDAL [Concomitant]
     Dosage: 1 MG-2 MG
     Dates: start: 20000801, end: 20001101
  6. PRAVACHOL [Concomitant]
  7. GLUCOPHAGE XR [Concomitant]
  8. WELLBUTRIN SR [Concomitant]
  9. LEVAQUIN [Concomitant]
  10. GEODON [Concomitant]
  11. CHANTIX [Concomitant]
  12. ABILIFY [Concomitant]
  13. TRAZODONE HYDROCHLORIDE [Concomitant]
  14. AMBIEN [Concomitant]
  15. LAMISIL [Concomitant]
  16. LIPITOR [Concomitant]
  17. DEPAKOTE [Concomitant]
  18. SONATA [Concomitant]
  19. ETODOLAC [Concomitant]
  20. METHYLPREDNISOLONE [Concomitant]
  21. NAPROXEN [Concomitant]
  22. COMBIVENT [Concomitant]
  23. PREDNISONE [Concomitant]
     Dates: start: 20010101
  24. CELEXA [Concomitant]
     Dosage: 40 MG TAKE ONE TABLET PO DAILY
     Dates: start: 20001111
  25. PROPOXYPHENE [Concomitant]
  26. AZMACORT [Concomitant]
  27. SPIRONOLACTONE [Concomitant]
  28. VENTOLIN [Concomitant]
  29. TRILOFAN [Concomitant]
  30. COGENTIN [Concomitant]
  31. VIOXX [Concomitant]
     Dates: start: 20030107

REACTIONS (21)
  - ABSCESS [None]
  - ASTHMA [None]
  - BRONCHITIS [None]
  - BRONCHOSPASM [None]
  - BURSITIS [None]
  - CONTUSION [None]
  - DIABETES MELLITUS [None]
  - FATIGUE [None]
  - GASTROOESOPHAGEAL REFLUX DISEASE [None]
  - HEPATIC ENZYME INCREASED [None]
  - LIVER DISORDER [None]
  - MAJOR DEPRESSION [None]
  - MUSCULOSKELETAL CHEST PAIN [None]
  - NEUROPATHY PERIPHERAL [None]
  - ONYCHOMYCOSIS [None]
  - PERIARTHRITIS [None]
  - PSYCHOTIC DISORDER [None]
  - SCHIZOTYPAL PERSONALITY DISORDER [None]
  - SKIN LESION [None]
  - STRESS URINARY INCONTINENCE [None]
  - TYPE 2 DIABETES MELLITUS [None]
